FAERS Safety Report 5415709-0 (Version None)
Quarter: 2007Q3

REPORT INFORMATION
  Report Type: 
  Country: None (occurrence: None)
  Receive Date: 20070718
  Receipt Date: 20070117
  Transmission Date: 20080115
  Serious: Yes (Hospitalization, Other)
  Sender: FDA-Public Use
  Company Number: 2007004723

PATIENT
  Sex: Male

DRUGS (3)
  1. CELEBREX [Suspect]
     Dosage: ORAL
     Route: 048
     Dates: start: 20040709, end: 20040901
  2. BEXTRA [Suspect]
     Dosage: ORAL
     Route: 048
     Dates: start: 20040930, end: 20041210
  3. VIOXX [Suspect]
     Dosage: ORAL
     Route: 048
     Dates: start: 20030214, end: 20040930

REACTIONS (1)
  - PULMONARY EMBOLISM [None]
